FAERS Safety Report 7724096-4 (Version None)
Quarter: 2011Q3

REPORT INFORMATION
  Report Type: 
  Country: None (occurrence: None)
  Receive Date: 20110901
  Receipt Date: 20110214
  Transmission Date: 20111222
  Serious: Yes (Other)
  Sender: FDA-Public Use
  Company Number: PHHY2011DE74873

PATIENT
  Sex: Male

DRUGS (1)
  1. SANDOSTATIN LAR [Suspect]
     Dosage: 200 UG, TID
     Route: 030

REACTIONS (3)
  - PAIN [None]
  - SKIN HAEMORRHAGE [None]
  - LIMB INJURY [None]
